FAERS Safety Report 6735305-2 (Version None)
Quarter: 2010Q2

REPORT INFORMATION
  Report Type: 
  Country: None (occurrence: None)
  Receive Date: 20100519
  Receipt Date: 20100512
  Transmission Date: 20101027
  Serious: Yes (Other)
  Sender: FDA-Public Use
  Company Number: DSA_42163_2009

PATIENT
  Sex: Male
  Weight: 42.7 kg

DRUGS (16)
  1. XENAZINE [Suspect]
     Indication: HUNTINGTON'S CHOREA
     Dosage: SEE IMAGE
     Route: 048
     Dates: start: 20090101, end: 20090101
  2. XENAZINE [Suspect]
     Indication: TIC
     Dosage: SEE IMAGE
     Route: 048
     Dates: start: 20090101, end: 20090101
  3. XENAZINE [Suspect]
     Indication: HUNTINGTON'S CHOREA
     Dosage: SEE IMAGE
     Route: 048
     Dates: start: 20090101, end: 20090101
  4. XENAZINE [Suspect]
     Indication: TIC
     Dosage: SEE IMAGE
     Route: 048
     Dates: start: 20090101, end: 20090101
  5. XENAZINE [Suspect]
     Indication: HUNTINGTON'S CHOREA
     Dosage: SEE IMAGE
     Route: 048
     Dates: start: 20091006, end: 20090101
  6. XENAZINE [Suspect]
     Indication: TIC
     Dosage: SEE IMAGE
     Route: 048
     Dates: start: 20091006, end: 20090101
  7. XENAZINE [Suspect]
     Indication: HUNTINGTON'S CHOREA
     Dosage: SEE IMAGE
     Route: 048
     Dates: start: 20090901, end: 20091005
  8. XENAZINE [Suspect]
     Indication: TIC
     Dosage: SEE IMAGE
     Route: 048
     Dates: start: 20090901, end: 20091005
  9. XENAZINE [Suspect]
     Indication: HUNTINGTON'S CHOREA
     Dosage: SEE IMAGE
     Route: 048
     Dates: start: 20100406, end: 20100413
  10. XENAZINE [Suspect]
     Indication: TIC
     Dosage: SEE IMAGE
     Route: 048
     Dates: start: 20100406, end: 20100413
  11. XENAZINE [Suspect]
     Indication: HUNTINGTON'S CHOREA
     Dosage: SEE IMAGE
     Route: 048
     Dates: start: 20090101
  12. XENAZINE [Suspect]
     Indication: TIC
     Dosage: SEE IMAGE
     Route: 048
     Dates: start: 20090101
  13. XENAZINE [Suspect]
     Indication: HUNTINGTON'S CHOREA
     Dosage: SEE IMAGE
     Route: 048
     Dates: start: 20100413
  14. XENAZINE [Suspect]
     Indication: TIC
     Dosage: SEE IMAGE
     Route: 048
     Dates: start: 20100413
  15. KEPPRA [Concomitant]
  16. MULTI-VITAMIN [Concomitant]

REACTIONS (4)
  - DYSTONIA [None]
  - SOMNOLENCE [None]
  - VOMITING [None]
  - WEIGHT INCREASED [None]
